FAERS Safety Report 7545201-9 (Version None)
Quarter: 2011Q2

REPORT INFORMATION
  Report Type: 
  Country: None (occurrence: None)
  Receive Date: 20110525
  Receipt Date: 20110502
  Transmission Date: 20111010
  Serious: Yes (Other)
  Sender: FDA-Public Use
  Company Number: 2011028633

PATIENT
  Age: 72 Year
  Sex: Female
  Weight: 58.9676 kg

DRUGS (14)
  1. PREMARIN [Concomitant]
  2. SINGULAIR [Concomitant]
  3. HIZENTRA [Suspect]
     Dosage: SUBCUTANEOUS
     Route: 058
     Dates: start: 20110425
  4. CITALOPRAM HBR (CITALOPRAM) [Concomitant]
  5. HIZENTRA [Suspect]
     Dosage: SUBCUTANEOUS
     Route: 058
     Dates: start: 20110425
  6. LIPITOR [Concomitant]
  7. ASTEPRO [Concomitant]
  8. HIZENTRA [Suspect]
     Indication: IMMUNODEFICIENCY COMMON VARIABLE
     Dosage: 6 G 1X/WEEK, INFUSED 30ML VIA 2 SITES OVER 1 HOUR 5 MINUTES, SUBCUTANEOUS
     Route: 058
     Dates: start: 20101020
  9. SYNTHROID [Concomitant]
  10. NASACORT AQ NASAL SPRAY (TRIAMCINOLONE ACETONIDE) [Concomitant]
  11. VITAMIN D [Concomitant]
  12. CELEBREX [Concomitant]
  13. AYR SALINE NOSE SPRAY (SODIUM CHLORIDE) [Concomitant]
  14. ANTIBIOTICS (NOS) (ANTIBIOTICS) [Concomitant]

REACTIONS (3)
  - RESPIRATORY TRACT INFECTION [None]
  - SWELLING [None]
  - SINUSITIS [None]
